FAERS Safety Report 23383072 (Version 3)
Quarter: 2024Q1

REPORT INFORMATION
  Report Type: Report from Study
  Country: US (occurrence: US)
  Receive Date: 20240109
  Receipt Date: 20240315
  Transmission Date: 20240410
  Serious: Yes (Other)
  Sender: FDA-Public Use
  Company Number: US-TAKEDA-2023TUS123255

PATIENT
  Age: 60 Year
  Sex: Female

DRUGS (2)
  1. FRUQUINTINIB [Suspect]
     Active Substance: FRUQUINTINIB
     Indication: Colon cancer
     Dosage: 5 MILLIGRAM, QD
     Route: 048
     Dates: start: 20231215, end: 20231222
  2. FRUQUINTINIB [Suspect]
     Active Substance: FRUQUINTINIB
     Dosage: 3 MILLIGRAM, QD
     Route: 048

REACTIONS (16)
  - Pain [Recovered/Resolved]
  - Erythema [Recovered/Resolved]
  - Peripheral swelling [Not Recovered/Not Resolved]
  - Bone disorder [Unknown]
  - Pain in extremity [Unknown]
  - Skin texture abnormal [Unknown]
  - Feeling hot [Unknown]
  - Gait inability [Unknown]
  - Alopecia [Not Recovered/Not Resolved]
  - Increased appetite [Not Recovered/Not Resolved]
  - Tenderness [Unknown]
  - Contusion [Unknown]
  - Swelling [Not Recovered/Not Resolved]
  - Skin disorder [Unknown]
  - Weight decreased [Not Recovered/Not Resolved]
  - Stomatitis [Recovered/Resolved]

NARRATIVE: CASE EVENT DATE: 20231219
